FAERS Safety Report 15351334 (Version 1)
Quarter: 2018Q3

REPORT INFORMATION
  Report Type: Spontaneous
  Country: US (occurrence: US)
  Receive Date: 20180905
  Receipt Date: 20180905
  Transmission Date: 20181010
  Serious: No
  Sender: FDA-Public Use
  Company Number: US-PFIZER INC-2018356671

PATIENT
  Age: 46 Year
  Sex: Female
  Weight: 108.86 kg

DRUGS (2)
  1. CHANTIX [Suspect]
     Active Substance: VARENICLINE TARTRATE
     Indication: SMOKING CESSATION THERAPY
     Dosage: 0.5MG ONCE A DAY FOR 3 DAYS
     Dates: start: 20180821
  2. CHANTIX [Suspect]
     Active Substance: VARENICLINE TARTRATE
     Dosage: 0.5MG TWICE ON DAYS 4?7
     Dates: end: 20180829

REACTIONS (6)
  - Constipation [Unknown]
  - Insomnia [Unknown]
  - Abdominal pain upper [Unknown]
  - Depression [Unknown]
  - Mood swings [Unknown]
  - Restlessness [Unknown]

NARRATIVE: CASE EVENT DATE: 201808
